FAERS Safety Report 4680592-8 (Version None)
Quarter: 2005Q2

REPORT INFORMATION
  Report Type: 
  Country: None (occurrence: None)
  Receive Date: 20050531
  Receipt Date: 20050315
  Transmission Date: 20051028
  Serious: Yes (Hospitalization)
  Sender: FDA-Public Use
  Company Number: 242406

PATIENT
  Age: 35 Year
  Sex: Female
  Weight: 81.2 kg

DRUGS (10)
  1. NOVOLOG MIX 70/30 [Suspect]
     Indication: DIABETES MELLITUS INSULIN-DEPENDENT
     Dosage: SLIDING SCALE, IU QD, SUBCUTAN.-PUMP
     Route: 058
     Dates: start: 20040923, end: 20050121
  2. NOVOLOG MIX 70/30 [Suspect]
     Indication: DIABETES MELLITUS INSULIN-DEPENDENT
     Dosage: SLIDING SCALE, IU QD, SUBCUTAN.-PUMP
     Route: 058
     Dates: start: 20050124, end: 20050204
  3. NOVOLOG MIX 70/30 [Suspect]
     Indication: DIABETES MELLITUS INSULIN-DEPENDENT
     Dosage: SLIDING SCALE, IU QD, SUBCUTAN.-PUMP
     Route: 058
     Dates: start: 20050207
  4. MINIMED PARADUGM 712 PUMP [Concomitant]
  5. LIPITOR [Concomitant]
  6. SYNTHROID [Concomitant]
  7. LOTREL [Concomitant]
  8. ACETYLSALICYLIC ACID SRT [Concomitant]
  9. CALCIUM GLUCONATE [Concomitant]
  10. LEVAQUIN [Concomitant]

REACTIONS (1)
  - DIABETIC KETOACIDOSIS [None]
